FAERS Safety Report 6175341-0 (Version None)
Quarter: 2009Q2

REPORT INFORMATION
  Report Type: 
  Country: None (occurrence: None)
  Receive Date: 20090429
  Receipt Date: 20090415
  Transmission Date: 20091009
  Serious: Yes (Other)
  Sender: FDA-Public Use
  Company Number: 2009003940

PATIENT
  Age: 48 Year
  Sex: Male
  Weight: 58.9676 kg

DRUGS (6)
  1. FENTORA [Suspect]
     Indication: PAIN
     Dosage: 2800 MCG (400 MCG, 7 IN 1 D), BU, 800 MCG, BU
     Route: 002
     Dates: start: 20070101
  2. FENTORA [Suspect]
     Indication: PAIN
     Dosage: 2800 MCG (400 MCG, 7 IN 1 D), BU, 800 MCG, BU
     Route: 002
     Dates: start: 20070101
  3. SOMA [Concomitant]
  4. VICODIN [Concomitant]
  5. FENTANYL [Concomitant]
  6. OXYCODONE HCL [Concomitant]

REACTIONS (11)
  - DIARRHOEA [None]
  - DRUG ABUSER [None]
  - DRUG DIVERSION [None]
  - DRUG INEFFECTIVE [None]
  - DRUG PRESCRIBING ERROR [None]
  - FEELING OF BODY TEMPERATURE CHANGE [None]
  - MUSCLE SPASMS [None]
  - NAUSEA [None]
  - PYREXIA [None]
  - VOMITING [None]
  - WITHDRAWAL SYNDROME [None]
